FAERS Safety Report 8440590-5 (Version None)
Quarter: 2012Q2

REPORT INFORMATION
  Report Type: 
  Country: None (occurrence: None)
  Receive Date: 20120615
  Receipt Date: 20120606
  Transmission Date: 20120825
  Serious: Yes (Hospitalization, Other)
  Sender: FDA-Public Use
  Company Number: US-BAYER-201018144NA

PATIENT
  Age: 38 Year
  Sex: Female
  Weight: 72.562 kg

DRUGS (20)
  1. GUAIFEN-C [Concomitant]
  2. NEXIUM [Concomitant]
     Dosage: UNK
     Dates: start: 20020101
  3. ZELNORM [Concomitant]
  4. ASPIRIN [Concomitant]
     Dosage: 81 MG, UNK
     Route: 048
  5. ASCORBIC ACID [Concomitant]
  6. PROTONIX [Concomitant]
     Indication: DYSPEPSIA
     Dosage: 40 MG, QD
     Route: 048
  7. NORETHINDRONE [Concomitant]
     Dosage: 5 MG, UNK
     Dates: start: 20070309
  8. AMBIEN [Concomitant]
     Indication: SLEEP DISORDER THERAPY
     Dosage: 10 MG, HS
     Route: 048
  9. VALTREX [Concomitant]
     Route: 048
  10. XANAX [Concomitant]
     Indication: ANXIETY
     Dosage: 0.25 MG, BID
     Route: 048
     Dates: start: 19960101
  11. LOESTRIN 1.5/30 [Concomitant]
     Dosage: UNK
     Route: 048
  12. DOXYCYCLINE [Concomitant]
     Dosage: 100 MG, UNK
     Route: 048
     Dates: start: 20040310
  13. MICROGESTIN 1.5/30 [Concomitant]
     Dosage: UNK
     Dates: start: 20090128, end: 20090626
  14. HYOSCYAMINE [Concomitant]
     Dosage: 0.125 MG, UNK
     Route: 048
     Dates: start: 20040420
  15. YASMIN [Suspect]
     Dosage: UNK UNK, UNK
     Route: 048
     Dates: start: 20000101, end: 20040101
  16. PAXIL [Concomitant]
     Indication: ANXIETY
     Dosage: 40 MG, QD
     Route: 048
     Dates: start: 19960101
  17. MIRALAX [Concomitant]
     Dosage: 17 G, QD
     Route: 048
  18. ZITHROMAX [Concomitant]
     Dosage: 250 MG, UNK
     Route: 048
     Dates: start: 20040323
  19. YASMIN [Suspect]
     Dosage: UNK
     Dates: start: 20031030, end: 20031231
  20. PRILOSEC [Concomitant]
     Dosage: UNK
     Dates: start: 20010101

REACTIONS (8)
  - PAIN IN EXTREMITY [None]
  - THROMBOSIS [None]
  - BILIARY DYSKINESIA [None]
  - ABDOMINAL DISTENSION [None]
  - ABDOMINAL PAIN LOWER [None]
  - CHOLECYSTITIS [None]
  - DEEP VEIN THROMBOSIS [None]
  - HAEMORRHOIDS [None]
